FAERS Safety Report 9247706 (Version 1)
Quarter: 2013Q1

REPORT INFORMATION
  Report Type: Spontaneous
  Country: US (occurrence: None)
  Receive Date: 20130305
  Receipt Date: 20130305
  Transmission Date: 20140127
  Serious: Yes (Other)
  Sender: FDA-Public Use
  Company Number: 163-21880-12093379

PATIENT
  Age: 72 Year
  Sex: Female

DRUGS (4)
  1. REVLIMID [Suspect]
     Indication: PLASMA CELL MYELOMA
     Dosage: 25 MG, 14 IN 21 D
     Route: 048
     Dates: start: 20120905, end: 2012
  2. AMLODIPINE (AMLODIPINE) [Concomitant]
  3. LISINOPRIL (LISINOPRIL) [Concomitant]
  4. DEXAMETHASONE (DEXAMETHASONE) [Concomitant]

REACTIONS (4)
  - Rash [None]
  - Hypotension [None]
  - Dizziness [None]
  - Urticaria [None]
